FAERS Safety Report 4784509-7 (Version None)
Quarter: 2005Q3

REPORT INFORMATION
  Report Type: 
  Country: None (occurrence: None)
  Receive Date: 20050930
  Receipt Date: 20041203
  Transmission Date: 20060218
  Serious: Yes (Other)
  Sender: FDA-Public Use
  Company Number: GB-GLAXOSMITHKLINE-B0359709A

PATIENT
  Sex: Male

DRUGS (3)
  1. SEROXAT [Suspect]
     Route: 065
     Dates: start: 19990501
  2. AMITRIPTYLINE HCL [Suspect]
     Route: 065
  3. CODYDRAMOL [Suspect]
     Route: 065

REACTIONS (2)
  - AFFECTIVE DISORDER [None]
  - INTENTIONAL MISUSE [None]
